FAERS Safety Report 6100182-X (Version None)
Quarter: 2009Q1

REPORT INFORMATION
  Report Type: 
  Country: None (occurrence: None)
  Receive Date: 20090226
  Receipt Date: 20090213
  Transmission Date: 20090719
  Serious: Yes (Other)
  Sender: FDA-Public Use
  Company Number: 1000004803

PATIENT
  Sex: Female

DRUGS (2)
  1. CITALOPRAM HYDROBROMIDE [Suspect]
     Dosage: 20 MG (20 MG, 1 IN 1 D)
  2. HYPNOTIC (TABLETS) [Suspect]

REACTIONS (3)
  - HYPONATRAEMIA [None]
  - SERUM FERRITIN INCREASED [None]
  - THROMBOCYTHAEMIA [None]
